FAERS Safety Report 20606389 (Version 1)
Quarter: 2022Q1

REPORT INFORMATION
  Report Type: Report from Study
  Country: FR (occurrence: None)
  Receive Date: 20220317
  Receipt Date: 20220317
  Transmission Date: 20220424
  Serious: Yes (Other)
  Sender: FDA-Public Use
  Company Number: FR-ROCHE-2263182

PATIENT
  Age: 66 Year
  Sex: Male
  Weight: 103 kg

DRUGS (7)
  1. RITUXIMAB [Suspect]
     Active Substance: RITUXIMAB
     Indication: Mantle cell lymphoma
     Dosage: DATE OF LAST DOSE OF RITUXIMAB PRIOR TO SAE: 24/MAY/2018 (1400 MG)?FOR 24 MONTHS
     Route: 058
     Dates: start: 20160711
  2. LENALIDOMIDE [Suspect]
     Active Substance: LENALIDOMIDE
     Indication: Mantle cell lymphoma
     Dosage: DATE OF LAST DOSE OF LENALIDOMIDE PRIOR TO SAE: 11/JUL/2018 (10 MG)?FOR 24 MONTHS
     Route: 065
     Dates: start: 20160712
  3. RITUXIMAB [Concomitant]
     Active Substance: RITUXIMAB
     Indication: Mantle cell lymphoma
     Dosage: ADMINISTERED IN 3 WEEK CYCLES FOR 8 CYCLES
     Route: 065
     Dates: start: 20151217, end: 20160513
  4. CYCLOPHOSPHAMIDE [Concomitant]
     Active Substance: CYCLOPHOSPHAMIDE
     Indication: Mantle cell lymphoma
     Dosage: ADMINISTERED IN 3 WEEK CYCLES FOR 8 CYCLES
     Dates: start: 20151217, end: 20160513
  5. DOXORUBICIN [Concomitant]
     Active Substance: DOXORUBICIN
     Indication: Mantle cell lymphoma
     Dosage: ADMINISTERED IN 3 WEEK CYCLES FOR 8 CYCLES
     Dates: start: 20151217, end: 20160513
  6. VINCRISTINE [Concomitant]
     Active Substance: VINCRISTINE
     Indication: Mantle cell lymphoma
     Dosage: ADMINISTERED IN 3 WEEK CYCLES FOR 8 CYCLES
     Dates: start: 20151217, end: 20160513
  7. PREDNISONE [Concomitant]
     Active Substance: PREDNISONE
     Indication: Mantle cell lymphoma
     Dosage: ADMINISTERED IN 3 WEEK CYCLES FOR 8 CYCLES
     Dates: start: 20151217, end: 20160513

REACTIONS (2)
  - Squamous cell carcinoma [Recovered/Resolved]
  - Squamous cell carcinoma of skin [Unknown]

NARRATIVE: CASE EVENT DATE: 20181228
